FAERS Safety Report 4795381-3 (Version None)
Quarter: 2005Q4

REPORT INFORMATION
  Report Type: 
  Country: None (occurrence: None)
  Receive Date: 20051012
  Receipt Date: 20050811
  Transmission Date: 20060501
  Serious: Yes (Hospitalization)
  Sender: FDA-Public Use
  Company Number: 2005SE04620

PATIENT
  Age: 1000 Month
  Sex: Female
  Weight: 55 kg

DRUGS (9)
  1. BLOPRESS [Suspect]
     Indication: CARDIAC FAILURE CHRONIC
     Route: 048
     Dates: start: 20050713, end: 20050804
  2. AMLODIPINE BESYLATE [Concomitant]
     Indication: HYPERTENSION
     Route: 048
     Dates: start: 20050726
  3. NITOROL R [Concomitant]
     Indication: CARDIAC FAILURE CHRONIC
     Route: 048
     Dates: start: 20000522, end: 20050617
  4. NITOROL R [Concomitant]
     Route: 048
     Dates: start: 20050726
  5. LASIX [Concomitant]
     Indication: OEDEMA PERIPHERAL
     Route: 048
     Dates: start: 20000522
  6. ALOSENN [Concomitant]
     Route: 048
     Dates: start: 20000522
  7. ADALAT [Concomitant]
     Route: 048
     Dates: start: 20000522, end: 20050726
  8. NAUZELIN [Concomitant]
     Route: 048
     Dates: start: 20050618, end: 20050726
  9. LAXOBERON [Concomitant]
     Route: 048
     Dates: start: 20000601, end: 20050726

REACTIONS (2)
  - OEDEMA [None]
  - RHABDOMYOLYSIS [None]
